FAERS Safety Report 11924559 (Version 1)
Quarter: 2016Q1

REPORT INFORMATION
  Report Type: Report from Study
  Country: DE (occurrence: DE)
  Receive Date: 20160118
  Receipt Date: 20160118
  Transmission Date: 20160526
  Serious: Yes (Hospitalization)
  Sender: FDA-Public Use
  Company Number: DE-ROCHE-1694000

PATIENT
  Age: 50 Year
  Sex: Female
  Weight: 66 kg

DRUGS (8)
  1. PERTUZUMAB [Suspect]
     Active Substance: PERTUZUMAB
     Indication: BREAST CANCER
     Dosage: LOADING DOSE
     Route: 042
     Dates: start: 20151002
  2. MYOCET [Suspect]
     Active Substance: DOXORUBICIN
     Dosage: RESTART
     Route: 042
     Dates: start: 20160108
  3. PERTUZUMAB [Suspect]
     Active Substance: PERTUZUMAB
     Dosage: DAY 1?LAST DOSE PRIOR TO SAE ON 04/DEC/2015
     Route: 042
     Dates: start: 20151023
  4. PACLITAXEL. [Suspect]
     Active Substance: PACLITAXEL
     Dosage: RESTART
     Route: 042
     Dates: start: 20160108
  5. MYOCET [Suspect]
     Active Substance: DOXORUBICIN
     Indication: BREAST CANCER
     Dosage: LAST DOSE PRIOR TO SAE ON 11/DEC/2015?DAY 1, FIRST CYCLE
     Route: 042
     Dates: start: 20151002, end: 20151218
  6. TRASTUZUMAB [Suspect]
     Active Substance: TRASTUZUMAB
     Dosage: DAY 1?LAST DOSE PRIOR TO SAE ON 04/DEC/2015
     Route: 042
     Dates: start: 20151023
  7. TRASTUZUMAB [Suspect]
     Active Substance: TRASTUZUMAB
     Indication: BREAST CANCER
     Dosage: LOADING DOSE
     Route: 042
     Dates: start: 20151002
  8. PACLITAXEL. [Suspect]
     Active Substance: PACLITAXEL
     Indication: BREAST CANCER
     Dosage: LAST DOSE PRIOR TO SAE ON 11/DEC/2015?DAY 1, FIRST CYCLE
     Route: 042
     Dates: start: 20151002, end: 20151218

REACTIONS (2)
  - Pyrexia [Recovered/Resolved]
  - Pneumonia [Recovered/Resolved]

NARRATIVE: CASE EVENT DATE: 20151217
